FAERS Safety Report 11981484 (Version 1)
Quarter: 2016Q1

REPORT INFORMATION
  Report Type: Spontaneous
  Country: US (occurrence: None)
  Receive Date: 20160129
  Receipt Date: 20160129
  Transmission Date: 20160526
  Serious: Yes (Hospitalization)
  Sender: FDA-Public Use
  Company Number: None

PATIENT
  Age: 77 Year
  Sex: Male
  Weight: 90.6 kg

DRUGS (19)
  1. AMARYL [Suspect]
     Active Substance: GLIMEPIRIDE
     Indication: DIABETES MELLITUS
     Dosage: CHRONIC
     Route: 048
  2. SPIRIVA [Concomitant]
     Active Substance: TIOTROPIUM BROMIDE MONOHYDRATE
  3. EPIPEN [Concomitant]
     Active Substance: EPINEPHRINE
  4. LANTUS [Suspect]
     Active Substance: INSULIN GLARGINE
     Indication: DIABETES MELLITUS
     Dosage: 45UNITS QHS SQ?
     Route: 058
  5. BYDUREON [Suspect]
     Active Substance: EXENATIDE
     Route: 058
  6. FE [Concomitant]
     Active Substance: IRON
  7. ADVAIR HFA [Concomitant]
     Active Substance: FLUTICASONE PROPIONATE\SALMETEROL XINAFOATE
  8. CARAFATE [Concomitant]
     Active Substance: SUCRALFATE
  9. CRESTOR [Concomitant]
     Active Substance: ROSUVASTATIN CALCIUM
  10. LOVAZA [Concomitant]
     Active Substance: OMEGA-3-ACID ETHYL ESTERS
  11. UROCRIT [Concomitant]
  12. FLOMAX [Concomitant]
     Active Substance: TAMSULOSIN HYDROCHLORIDE
  13. NTG [Concomitant]
     Active Substance: NITROGLYCERIN
  14. ASA [Concomitant]
     Active Substance: ASPIRIN
  15. LASIX [Concomitant]
     Active Substance: FUROSEMIDE
  16. PROTONIX [Concomitant]
     Active Substance: PANTOPRAZOLE SODIUM
  17. SYMBICORT [Concomitant]
     Active Substance: BUDESONIDE\FORMOTEROL FUMARATE DIHYDRATE
  18. COREG [Concomitant]
     Active Substance: CARVEDILOL
  19. VITD [Concomitant]

REACTIONS (3)
  - Syncope [None]
  - Hypoglycaemia [None]
  - Injection site reaction [None]

NARRATIVE: CASE EVENT DATE: 20151003
